FAERS Safety Report 4454217-0 (Version None)
Quarter: 2004Q3

REPORT INFORMATION
  Report Type: 
  Country: None (occurrence: None)
  Receive Date: 20040826
  Receipt Date: 20040430
  Transmission Date: 20050211
  Serious: No
  Sender: FDA-Public Use
  Company Number: WAES 0405USA00040

PATIENT

DRUGS (2)
  1. ZETIA [Suspect]
     Dosage: PO
     Route: 048
  2. CYCLOSPORINE [Concomitant]

REACTIONS (1)
  - LABORATORY TEST ABNORMAL [None]
